FAERS Safety Report 21535015 (Version 2)
Quarter: 2022Q4

REPORT INFORMATION
  Report Type: Spontaneous
  Country: US (occurrence: US)
  Receive Date: 20221101
  Receipt Date: 20221114
  Transmission Date: 20230113
  Serious: Yes (Hospitalization, Other)
  Sender: FDA-Public Use
  Company Number: US-INCYTE CORPORATION-2022IN010473

PATIENT

DRUGS (1)
  1. JAKAFI [Suspect]
     Active Substance: RUXOLITINIB
     Indication: Myelofibrosis
     Dosage: 15 MILLIGRAM, BID (AT ABOUT THE SAME TIMES WITH OR WITHOUT FOOD)
     Route: 048

REACTIONS (2)
  - Herpes ophthalmic [Recovered/Resolved]
  - Withdrawal syndrome [Recovered/Resolved]
